FAERS Safety Report 7983160-5 (Version None)
Quarter: 2011Q4

REPORT INFORMATION
  Report Type: 
  Country: None (occurrence: None)
  Receive Date: 20111215
  Receipt Date: 20111208
  Transmission Date: 20120403
  Serious: Yes (Hospitalization, Other)
  Sender: FDA-Public Use
  Company Number: US-JNJFOC-20111205928

PATIENT
  Age: 17 Year
  Sex: Female

DRUGS (30)
  1. VINCRISTINE [Suspect]
     Route: 065
  2. ETOPOSIDE [Suspect]
     Dosage: THROUGH 5 DAYS
     Route: 065
  3. ETOPOSIDE [Suspect]
     Dosage: THROUGH 5 DAYS
     Route: 065
  4. VINCRISTINE [Suspect]
     Route: 065
  5. VINCRISTINE [Suspect]
     Route: 065
  6. VINCRISTINE [Suspect]
     Route: 065
  7. CYCLOPHOSPHAMIDE [Suspect]
     Route: 065
  8. IFOSFAMIDE [Suspect]
     Dosage: THROUGH 5 DAYS
     Route: 065
  9. VINCRISTINE [Suspect]
     Indication: EWING'S SARCOMA
     Route: 065
  10. CYCLOPHOSPHAMIDE [Suspect]
     Indication: EWING'S SARCOMA
     Route: 065
  11. CYCLOPHOSPHAMIDE [Suspect]
     Route: 065
  12. IFOSFAMIDE [Suspect]
     Dosage: THROUGH 5 DAYS
     Route: 065
  13. DOXORUBICIN HCL [Suspect]
     Dosage: THROUGH 2 DAYS
     Route: 042
  14. CYCLOPHOSPHAMIDE [Suspect]
     Route: 065
  15. IFOSFAMIDE [Suspect]
     Dosage: THROUGH 5 DAYS
     Route: 065
  16. DOXORUBICIN HCL [Suspect]
     Indication: EWING'S SARCOMA
     Dosage: THROUGH 2 DAYS
     Route: 042
  17. DOXORUBICIN HCL [Suspect]
     Dosage: THROUGH 2 DAYS
     Route: 042
  18. CYCLOPHOSPHAMIDE [Suspect]
     Route: 065
  19. IFOSFAMIDE [Suspect]
     Dosage: THROUGH 5 DAYS
     Route: 065
  20. CYCLOPHOSPHAMIDE [Suspect]
     Route: 065
  21. IFOSFAMIDE [Suspect]
     Indication: EWING'S SARCOMA
     Dosage: THROUGH 5 DAYS
     Route: 065
  22. DOXORUBICIN HCL [Suspect]
     Dosage: THROUGH 2 DAYS
     Route: 042
  23. DOXORUBICIN HCL [Suspect]
     Dosage: THROUGH 2 DAYS
     Route: 042
  24. DOXORUBICIN HCL [Suspect]
     Dosage: THROUGH 2 DAYS
     Route: 042
  25. VINCRISTINE [Suspect]
     Route: 065
  26. ETOPOSIDE [Suspect]
     Indication: EWING'S SARCOMA
     Dosage: THROUGH 5 DAYS
     Route: 065
  27. ETOPOSIDE [Suspect]
     Dosage: THROUGH 5 DAYS
     Route: 065
  28. ETOPOSIDE [Suspect]
     Dosage: THROUGH 5 DAYS
     Route: 065
  29. ETOPOSIDE [Suspect]
     Dosage: THROUGH 5 DAYS
     Route: 065
  30. IFOSFAMIDE [Suspect]
     Dosage: THROUGH 5 DAYS
     Route: 065

REACTIONS (4)
  - DEVICE RELATED INFECTION [None]
  - WEIGHT DECREASED [None]
  - MUCOSAL INFLAMMATION [None]
  - FEBRILE NEUTROPENIA [None]
